FAERS Safety Report 4842901-6 (Version None)
Quarter: 2005Q4

REPORT INFORMATION
  Report Type: 
  Country: None (occurrence: None)
  Receive Date: 20051130
  Receipt Date: 20051027
  Transmission Date: 20060501
  Serious: Yes (Other)
  Sender: FDA-Public Use
  Company Number: SGB1-2005-00516

PATIENT
  Sex: 0

DRUGS (1)
  1. MIDODRINE HCL [Suspect]
     Indication: ORTHOSTATIC HYPOTENSION

REACTIONS (1)
  - INTESTINAL ISCHAEMIA [None]
